FAERS Safety Report 13681738 (Version 1)
Quarter: 2017Q2

REPORT INFORMATION
  Report Type: Spontaneous
  Country: US (occurrence: US)
  Receive Date: 20170622
  Receipt Date: 20170622
  Transmission Date: 20170830
  Serious: Yes (Life-Threatening, Hospitalization, Disabling)
  Sender: FDA-Public Use
  Company Number: None

PATIENT
  Age: 57 Year
  Sex: Female
  Weight: 67.5 kg

DRUGS (2)
  1. BENZO [Concomitant]
     Active Substance: BENZYL BENZOATE
  2. DALMANE [Suspect]
     Active Substance: FLURAZEPAM HYDROCHLORIDE
     Indication: SLEEP DISORDER
     Route: 048

REACTIONS (7)
  - Impaired quality of life [None]
  - Abnormal behaviour [None]
  - Malaise [None]
  - Mental impairment [None]
  - Drug withdrawal syndrome [None]
  - Product use issue [None]
  - Drug ineffective [None]

NARRATIVE: CASE EVENT DATE: 20100315
